FAERS Safety Report 5417014-5 (Version None)
Quarter: 2007Q3

REPORT INFORMATION
  Report Type: 
  Country: None (occurrence: None)
  Receive Date: 20070816
  Receipt Date: 20060914
  Transmission Date: 20080115
  Serious: Yes (Disabling)
  Sender: FDA-Public Use
  Company Number: JP-JNJFOC-20060904238

PATIENT
  Sex: Female

DRUGS (11)
  1. LEUSTATIN [Suspect]
     Indication: B-CELL LYMPHOMA
     Route: 041
  2. BAKTAR [Concomitant]
     Indication: INFECTION PROPHYLAXIS
     Route: 048
  3. ZANTAC 150 [Concomitant]
     Indication: PROPHYLAXIS AGAINST GASTROINTESTINAL ULCER
     Route: 048
  4. MAGNESIUM OXIDE [Concomitant]
     Indication: CONSTIPATION
     Route: 048
  5. DIFLUCAN [Concomitant]
     Indication: INFECTION PROPHYLAXIS
     Route: 048
  6. NITRAZEPAM [Concomitant]
     Indication: INSOMNIA
     Route: 048
  7. PURSENNID [Concomitant]
     Indication: CONSTIPATION
     Route: 048
  8. NASEA [Concomitant]
     Indication: VOMITING
  9. NASEA [Concomitant]
     Indication: NAUSEA
  10. LOXONIN [Concomitant]
     Indication: ANTIPYRESIS
     Route: 048
  11. GRAN [Concomitant]
     Route: 058

REACTIONS (1)
  - LEUKOENCEPHALOPATHY [None]
